FAERS Safety Report 11857430 (Version 1)
Quarter: 2015Q4

REPORT INFORMATION
  Report Type: Spontaneous
  Country: US (occurrence: None)
  Receive Date: 20151221
  Receipt Date: 20151221
  Transmission Date: 20160305
  Serious: Yes (Hospitalization, Disabling)
  Sender: FDA-Public Use
  Company Number: None

PATIENT
  Age: 51 Year
  Sex: Male
  Weight: 83.92 kg

DRUGS (14)
  1. COGENTIN [Concomitant]
     Active Substance: BENZTROPINE MESYLATE
  2. MONTELUKAST (SINGULAR) [Concomitant]
  3. PANTORPRAZOLE (PERPHENAZINE - PERPHENIZE TRILAFON) [Concomitant]
  4. ASPIRIN. [Concomitant]
     Active Substance: ASPIRIN
  5. METFORIN HCL GLUCOPHAGE [Concomitant]
  6. TOLTERODINE DETROLE [Concomitant]
  7. GLUCOFAGE [Concomitant]
  8. BENZTROPINE [Concomitant]
     Active Substance: BENZTROPINE
  9. DIVALPROE SODIUM [Concomitant]
  10. DEPAKOTE SODIUM [Concomitant]
  11. ACTOS [Suspect]
     Active Substance: PIOGLITAZONE HYDROCHLORIDE
     Indication: DIABETES MELLITUS
     Route: 048
     Dates: start: 2010, end: 2013
  12. DEPAKENE [Concomitant]
     Active Substance: VALPROIC ACID
  13. LOSARTAN POTASSIUM COZAAR [Concomitant]
  14. HUMULIN NOS [Suspect]
     Active Substance: INSULIN HUMAN
     Indication: DIABETES MELLITUS
     Dates: start: 2010, end: 2013

REACTIONS (3)
  - Unevaluable event [None]
  - Refusal of treatment by patient [None]
  - Legal problem [None]

NARRATIVE: CASE EVENT DATE: 20151101
